FAERS Safety Report 12576039 (Version 2)
Quarter: 2016Q3

REPORT INFORMATION
  Report Type: Spontaneous
  Country: GB (occurrence: GB)
  Receive Date: 20160720
  Receipt Date: 20160919
  Transmission Date: 20161109
  Serious: Yes (Other)
  Sender: FDA-Public Use
  Company Number: PHFR2016GB005840

PATIENT
  Age: 48 Year
  Sex: Female

DRUGS (1)
  1. GILENYA [Suspect]
     Active Substance: FINGOLIMOD HYDROCHLORIDE
     Indication: RELAPSING-REMITTING MULTIPLE SCLEROSIS
     Dosage: UNK
     Route: 065
     Dates: start: 201007

REACTIONS (7)
  - Micturition urgency [Recovered/Resolved]
  - Incontinence [Recovered/Resolved]
  - Multiple sclerosis relapse [Unknown]
  - Urinary tract infection [Recovering/Resolving]
  - Hepatotoxicity [Unknown]
  - Bladder disorder [Recovering/Resolving]
  - Ataxia [Recovered/Resolved]

NARRATIVE: CASE EVENT DATE: 201212
